FAERS Safety Report 4668263-5 (Version None)
Quarter: 2005Q2

REPORT INFORMATION
  Report Type: 
  Country: None (occurrence: None)
  Receive Date: 20050523
  Receipt Date: 20050419
  Transmission Date: 20051028
  Serious: Yes (Hospitalization, Other)
  Sender: FDA-Public Use
  Company Number: PHBS2005BE05749

PATIENT
  Age: 50 Year
  Sex: Female

DRUGS (1)
  1. ZOMETA [Suspect]
     Indication: METASTASES TO BONE
     Dosage: 4 MG, QMO
     Route: 042
     Dates: start: 20030701, end: 20050425

REACTIONS (13)
  - ABSCESS [None]
  - ASEPTIC NECROSIS BONE [None]
  - BLOOD ALKALINE PHOSPHATASE INCREASED [None]
  - BONE SCAN ABNORMAL [None]
  - GAMMA-GLUTAMYLTRANSFERASE INCREASED [None]
  - GINGIVAL INFECTION [None]
  - JAW DISORDER [None]
  - MANDIBULECTOMY [None]
  - OSTEOMYELITIS [None]
  - PROSTHESIS IMPLANTATION [None]
  - SURGERY [None]
  - SWELLING [None]
  - TOOTH EXTRACTION [None]
